FAERS Safety Report 17855894 (Version 1)
Quarter: 2020Q2

REPORT INFORMATION
  Report Type: Spontaneous
  Country: IT (occurrence: IT)
  Receive Date: 20200603
  Receipt Date: 20200603
  Transmission Date: 20200714
  Serious: Yes (Other)
  Sender: FDA-Public Use
  Company Number: NVSC2020IT152439

PATIENT
  Age: 65 Year
  Sex: Female

DRUGS (2)
  1. EXEMESTANE. [Concomitant]
     Active Substance: EXEMESTANE
     Indication: BREAST NEOPLASM
     Dosage: 25 MG, QD
     Route: 048
     Dates: start: 20190408
  2. AFINITOR [Suspect]
     Active Substance: EVEROLIMUS
     Indication: BREAST NEOPLASM
     Dosage: 10 MG, QD
     Route: 048
     Dates: start: 20190408, end: 20190424

REACTIONS (2)
  - Mucosal inflammation [Recovered/Resolved]
  - Hyperglycaemia [Recovered/Resolved]

NARRATIVE: CASE EVENT DATE: 20190424
